FAERS Safety Report 10194632 (Version 1)
Quarter: 2014Q2

REPORT INFORMATION
  Report Type: Spontaneous
  Country: US (occurrence: US)
  Receive Date: 20140526
  Receipt Date: 20140526
  Transmission Date: 20141212
  Serious: No
  Sender: FDA-Public Use
  Company Number: US-BIOGENIDEC-2014BI045279

PATIENT
  Age: 65 Year
  Sex: Male

DRUGS (13)
  1. TECFIDERA [Suspect]
     Indication: MULTIPLE SCLEROSIS
     Route: 048
     Dates: start: 20140404
  2. TECFIDERA [Suspect]
     Indication: MULTIPLE SCLEROSIS
     Dates: start: 201404
  3. AMPYRA [Concomitant]
     Route: 048
  4. CALCIUM [Concomitant]
  5. CALCIUM D PLUS [Concomitant]
  6. FISH OIL [Concomitant]
  7. AVODART [Concomitant]
  8. FOSAMAX [Concomitant]
     Indication: OSTEOPOROSIS
  9. GABAPENTIN (NEURONTIN) [Concomitant]
  10. OXISTAT [Concomitant]
  11. VITAMIN B 400 [Concomitant]
  12. MYRBETRIQ [Concomitant]
     Indication: HYPERTONIC BLADDER
  13. ALPRAZOLAM [Concomitant]
     Indication: MUSCLE SPASMS
     Route: 048

REACTIONS (9)
  - Arthralgia [Not Recovered/Not Resolved]
  - Hyperchlorhydria [Not Recovered/Not Resolved]
  - Headache [Not Recovered/Not Resolved]
  - Pain in jaw [Not Recovered/Not Resolved]
  - Asthenia [Unknown]
  - Disturbance in attention [Unknown]
  - Psychological trauma [Unknown]
  - Nausea [Not Recovered/Not Resolved]
  - Flushing [Recovered/Resolved]
